FAERS Safety Report 5443559-8 (Version None)
Quarter: 2007Q3

REPORT INFORMATION
  Report Type: 
  Country: None (occurrence: None)
  Receive Date: 20070905
  Receipt Date: 20070824
  Transmission Date: 20080115
  Serious: Yes (Other)
  Sender: FDA-Public Use
  Company Number: US-ROCHE-511819

PATIENT
  Age: 24 Year
  Sex: Male

DRUGS (1)
  1. ACCUTANE [Suspect]
     Indication: DRUG USE FOR UNKNOWN INDICATION
     Dosage: DATE WAS REPORTED AS THE SUMMER OF 2002.
     Route: 065

REACTIONS (3)
  - ERECTILE DYSFUNCTION [None]
  - HOMICIDE [None]
  - MAJOR DEPRESSION [None]
